FAERS Safety Report 7386821-4 (Version None)
Quarter: 2011Q1

REPORT INFORMATION
  Report Type: 
  Country: None (occurrence: None)
  Receive Date: 20110331
  Receipt Date: 20110317
  Transmission Date: 20110831
  Serious: Yes (Other)
  Sender: FDA-Public Use
  Company Number: PHHY2011US25555

PATIENT
  Age: 58 Year
  Sex: Female

DRUGS (2)
  1. PREDNISONE [Suspect]
     Route: 048
  2. METHYLPREDNISOLONE [Suspect]
     Dosage: 5 DF, UNK
     Route: 042

REACTIONS (4)
  - DURAL FISTULA [None]
  - SPINAL DISORDER [None]
  - ASTHENIA [None]
  - GAIT DISTURBANCE [None]
